FAERS Safety Report 4862121-9 (Version None)
Quarter: 2005Q4

REPORT INFORMATION
  Report Type: 
  Country: None (occurrence: None)
  Receive Date: 20051201
  Receipt Date: 20050814
  Transmission Date: 20060501
  Serious: No
  Sender: FDA-Public Use
  Company Number: 2005PV001197

PATIENT
  Age: 17 Year
  Sex: Female
  Weight: 110.2241 kg

DRUGS (8)
  1. BYETTA [Suspect]
     Indication: GLUCOSE TOLERANCE IMPAIRED
     Dosage: 5 MCG, BID, SC
     Route: 058
     Dates: start: 20050814
  2. METFORMIN [Concomitant]
  3. NEUTROPIN AQ PEN [Concomitant]
  4. TOPAMAX [Concomitant]
  5. ANAPROX DS [Concomitant]
  6. NEURONTIN [Concomitant]
  7. SYNTHROID [Concomitant]
  8. DDAVP [Concomitant]

REACTIONS (4)
  - BLOOD GLUCOSE DECREASED [None]
  - EARLY SATIETY [None]
  - SOMNOLENCE [None]
  - TREMOR [None]
